FAERS Safety Report 16789732 (Version 1)
Quarter: 2019Q4

REPORT INFORMATION
  Report Type: Spontaneous
  Country: US (occurrence: US)
  Receive Date: 20190909
  Receipt Date: 20190909
  Transmission Date: 20200122
  Serious: Yes (Hospitalization)
  Sender: FDA-Public Use
  Company Number: None

PATIENT
  Age: 67 Year
  Sex: Male

DRUGS (1)
  1. KYMRIAH [Suspect]
     Active Substance: TISAGENLECLEUCEL
     Indication: PLASMA CELL MYELOMA
     Dates: start: 20190524, end: 20190524

REACTIONS (2)
  - Atrial flutter [None]
  - Cytokine release syndrome [None]

NARRATIVE: CASE EVENT DATE: 20190524
